FAERS Safety Report 15606418 (Version 1)
Quarter: 2018Q4

REPORT INFORMATION
  Report Type: Other
  Country: IN (occurrence: IN)
  Receive Date: 20181112
  Receipt Date: 20181112
  Transmission Date: 20190205
  Serious: Yes (Hospitalization)
  Sender: FDA-Public Use
  Company Number: IN-ALLIED PHARMA, LLC-2058715

PATIENT
  Age: 74 Year
  Sex: Male

DRUGS (5)
  1. IVABRADINE [Concomitant]
     Active Substance: IVABRADINE
     Route: 065
  2. CLARITHROMYCIN. [Suspect]
     Active Substance: CLARITHROMYCIN
     Indication: CHRONIC OBSTRUCTIVE PULMONARY DISEASE
     Route: 065
  3. PIPERACILLIN AND TAZOBACTAM [Concomitant]
     Active Substance: PIPERACILLIN SODIUM\TAZOBACTAM SODIUM
     Route: 065
  4. DIGOXIN. [Concomitant]
     Active Substance: DIGOXIN
     Route: 065
  5. RANOLAZINE. [Interacting]
     Active Substance: RANOLAZINE
     Route: 065

REACTIONS (6)
  - Dysmetria [Recovered/Resolved]
  - Dysarthria [Recovered/Resolved]
  - Drug interaction [Recovered/Resolved]
  - Hallucination, visual [Recovered/Resolved]
  - Confusional state [Recovered/Resolved]
  - Ataxia [Recovered/Resolved]
